FAERS Safety Report 8011724-1 (Version None)
Quarter: 2011Q4

REPORT INFORMATION
  Report Type: 
  Country: None (occurrence: None)
  Receive Date: 20111228
  Receipt Date: 20111223
  Transmission Date: 20120403
  Serious: No
  Sender: FDA-Public Use
  Company Number: US-BAYER-2011-123757

PATIENT
  Age: 76 Year
  Sex: Male

DRUGS (1)
  1. ALEVE (CAPLET) [Suspect]
     Indication: GOUT
     Dosage: 2 U, QD
     Route: 048

REACTIONS (1)
  - NO ADVERSE EVENT [None]
